FAERS Safety Report 13266974 (Version 1)
Quarter: 2017Q1

REPORT INFORMATION
  Report Type: Spontaneous
  Country: BR (occurrence: BR)
  Receive Date: 20170224
  Receipt Date: 20170224
  Transmission Date: 20170428
  Serious: Yes (Other)
  Sender: FDA-Public Use
  Company Number: BR-ROCHE-1893822

PATIENT
  Age: 62 Year
  Sex: Female

DRUGS (2)
  1. LEXOTAN [Suspect]
     Active Substance: BROMAZEPAM
     Indication: AGITATION
     Route: 065
  2. RIVOTRIL [Suspect]
     Active Substance: CLONAZEPAM
     Indication: PRODUCT USED FOR UNKNOWN INDICATION
     Route: 065
     Dates: start: 2011

REACTIONS (13)
  - Heart rate irregular [Unknown]
  - Varicose vein [Unknown]
  - Back pain [Unknown]
  - Drug dependence [Unknown]
  - Hyperventilation [Unknown]
  - Lethargy [Unknown]
  - Vision blurred [Unknown]
  - Malaise [Unknown]
  - Paralysis [Unknown]
  - Nervous system disorder [Unknown]
  - Headache [Unknown]
  - Nervousness [Unknown]
  - Overdose [Unknown]

NARRATIVE: CASE EVENT DATE: 20170212
